FAERS Safety Report 4755718-8 (Version None)
Quarter: 2005Q3

REPORT INFORMATION
  Report Type: 
  Country: None (occurrence: None)
  Receive Date: 20050830
  Receipt Date: 20050706
  Transmission Date: 20060218
  Serious: No
  Sender: FDA-Public Use
  Company Number: US-BRISTOL-MYERS SQUIBB COMPANY-13033915

PATIENT
  Age: 43 Year
  Sex: Female

DRUGS (8)
  1. ABILIFY [Suspect]
     Indication: SCHIZOPHRENIA
  2. TRAZODONE HCL [Concomitant]
  3. PROZAC [Concomitant]
  4. ATIVAN [Concomitant]
     Indication: FIBROMYALGIA
  5. EFFEXOR [Concomitant]
  6. RISPERDAL [Concomitant]
     Dosage: 2+ YEARS
  7. ZYPREXA [Concomitant]
     Dosage: } 6 YEARS
  8. ESKALITH [Concomitant]
     Dosage: 450 MG- 2

REACTIONS (1)
  - TARDIVE DYSKINESIA [None]
